FAERS Safety Report 23160303 (Version 5)
Quarter: 2024Q1

REPORT INFORMATION
  Report Type: Spontaneous
  Country: US (occurrence: US)
  Receive Date: 20231108
  Receipt Date: 20240103
  Transmission Date: 20240410
  Serious: No
  Sender: FDA-Public Use
  Company Number: US-PFIZER INC-PV202300176207

PATIENT
  Age: 1 Year
  Sex: Male

DRUGS (8)
  1. GENOTROPIN [Suspect]
     Active Substance: SOMATROPIN
     Indication: Growth disorder
     Dosage: 7 DAYS A WEEK, GIVEN IN HIS ARM
     Dates: end: 20231024
  2. MIRALAX [Concomitant]
     Active Substance: POLYETHYLENE GLYCOL 3350
     Indication: Constipation
     Dosage: 1X/DAY, (HALF A CAP FULL ONCE A DAY MIX WITH MILK THROUGH FEEDING TUBE)
  3. PEPCID [Concomitant]
     Active Substance: FAMOTIDINE
     Indication: Gastrooesophageal reflux disease
     Dosage: 0.6 ML, 1X/DAY (THROUGH FEEDING TUBE)
  4. CEPHALEXIN [Concomitant]
     Active Substance: CEPHALEXIN
     Indication: Infection prophylaxis
     Dosage: 6 MG, 1X/DAY, (6MG ONCE A DAY THROUGH FEEDING TUBE)
  5. CITRIC ACID [Concomitant]
     Active Substance: CITRIC ACID MONOHYDRATE
     Indication: Renal disorder
     Dosage: 15 ML, 2X/DAY (THROUGH FEEDING TUBE)
  6. EPOGEN [Concomitant]
     Active Substance: ERYTHROPOIETIN
     Indication: Anaemia
     Dosage: 0.2 ML, 2X/WEEK, (TUESDAY AND FRIDAY)
  7. FERROUS SULFATE [Concomitant]
     Active Substance: FERROUS SULFATE
     Indication: Iron deficiency
     Dosage: 0.3 ML, 1X/DAY, (THROUGH FEEDING)
  8. SODIUM CHLORIDE [Concomitant]
     Active Substance: SODIUM CHLORIDE
     Indication: Renal disorder
     Dosage: 1 ML, 1X/DAY, (THROUGH FEEDING TUBE)

REACTIONS (4)
  - Drug dose omission by device [Unknown]
  - Poor quality device used [Unknown]
  - Device mechanical issue [Unknown]
  - Device leakage [Unknown]
